FAERS Safety Report 9338753 (Version 1)
Quarter: 2013Q2

REPORT INFORMATION
  Report Type: Spontaneous
  Country: US (occurrence: US)
  Receive Date: 20130610
  Receipt Date: 20130610
  Transmission Date: 20140414
  Serious: Yes (Other)
  Sender: FDA-Public Use
  Company Number: US-PFIZER INC-2013171909

PATIENT
  Age: 89 Year
  Sex: Female
  Weight: 61.22 kg

DRUGS (4)
  1. DETROL LA [Suspect]
     Indication: HYPERTONIC BLADDER
     Dosage: 4 MG, 1X/DAY
     Route: 048
  2. ATENOLOL [Concomitant]
     Indication: HYPERTENSION
     Dosage: UNK
  3. LISINOPRIL [Concomitant]
     Indication: HYPERTENSION
     Dosage: UNK
  4. LOVASTATIN [Concomitant]
     Indication: BLOOD CHOLESTEROL INCREASED
     Dosage: UNK

REACTIONS (2)
  - Hypoacusis [Unknown]
  - Trigger finger [Unknown]
